FAERS Safety Report 5603643-2 (Version None)
Quarter: 2008Q1

REPORT INFORMATION
  Report Type: 
  Country: None (occurrence: None)
  Receive Date: 20080123
  Receipt Date: 20080107
  Transmission Date: 20080703
  Serious: Yes (Hospitalization, Other)
  Sender: FDA-Public Use
  Company Number: 022803

PATIENT
  Age: 74 Year
  Sex: Female

DRUGS (6)
  1. PROPAFENONE HCL [Suspect]
     Indication: ATRIAL FIBRILLATION
     Dosage: 450 MG, INCREASED TO 675 MG,
  2. FLUOXETINE [Suspect]
     Dosage: 20 MG,
  3. RISPERIDONE [Suspect]
  4. FUROSEMIDE [Concomitant]
  5. ATORVASTATIN CALCIUM [Concomitant]
  6. WARFARIN SODIUM [Concomitant]

REACTIONS (30)
  - ALANINE AMINOTRANSFERASE INCREASED [None]
  - ANOREXIA [None]
  - ASPARTATE AMINOTRANSFERASE INCREASED [None]
  - ATRIAL FLUTTER [None]
  - BLOOD CREATININE INCREASED [None]
  - BLOOD GLUCOSE INCREASED [None]
  - BLOOD LACTIC ACID INCREASED [None]
  - BLOOD POTASSIUM INCREASED [None]
  - BODY TEMPERATURE DECREASED [None]
  - CARDIAC MURMUR [None]
  - CAROTID BRUIT [None]
  - CONDUCTION DISORDER [None]
  - DIZZINESS [None]
  - DRUG INTERACTION [None]
  - DRUG TOXICITY [None]
  - ELECTROCARDIOGRAM QRS COMPLEX PROLONGED [None]
  - ELECTROCARDIOGRAM QT PROLONGED [None]
  - ELECTROCARDIOGRAM T WAVE INVERSION [None]
  - HEPATIC FUNCTION ABNORMAL [None]
  - INTERNATIONAL NORMALISED RATIO INCREASED [None]
  - LETHARGY [None]
  - MALAISE [None]
  - MENTAL STATUS CHANGES [None]
  - MITRAL VALVE INCOMPETENCE [None]
  - NAUSEA [None]
  - PERIPHERAL COLDNESS [None]
  - RENAL IMPAIRMENT [None]
  - TRICUSPID VALVE INCOMPETENCE [None]
  - VENTRICULAR HYPOKINESIA [None]
  - WHEEZING [None]
